FAERS Safety Report 16214502 (Version 2)
Quarter: 2019Q2

REPORT INFORMATION
  Report Type: Spontaneous
  Country: US (occurrence: US)
  Receive Date: 20190418
  Receipt Date: 20190514
  Transmission Date: 20190711
  Serious: No
  Sender: FDA-Public Use
  Company Number: US-VIFOR (INTERNATIONAL) INC.-VIT-2019-03015

PATIENT
  Age: 51 Year
  Sex: Male
  Weight: 56.75 kg

DRUGS (3)
  1. VELTASSA [Suspect]
     Active Substance: PATIROMER
     Indication: RENAL TRANSPLANT
     Route: 048
     Dates: start: 2018
  2. AMOXICILLIN. [Concomitant]
     Active Substance: AMOXICILLIN
  3. VELTASSA [Suspect]
     Active Substance: PATIROMER
     Indication: BLOOD POTASSIUM INCREASED

REACTIONS (4)
  - Product preparation issue [Unknown]
  - Tooth infection [Unknown]
  - Blood potassium increased [Recovered/Resolved]
  - Constipation [Recovered/Resolved]

NARRATIVE: CASE EVENT DATE: 2018
